FAERS Safety Report 24614959 (Version 1)
Quarter: 2024Q4

REPORT INFORMATION
  Report Type: Spontaneous
  Country: CA (occurrence: CA)
  Receive Date: 20241113
  Receipt Date: 20241113
  Transmission Date: 20250114
  Serious: Yes (Hospitalization, Other)
  Sender: MYLAN
  Company Number: CA-MYLANLABS-2024M1101262

PATIENT
  Age: 68 Year
  Sex: Male

DRUGS (9)
  1. LEVOTHYROXINE [Suspect]
     Active Substance: LEVOTHYROXINE
     Indication: Product used for unknown indication
     Dosage: 200 MICROGRAM, QD (1 EVERY 24 HOURS)
     Route: 065
  2. LEVOTHYROXINE [Suspect]
     Active Substance: LEVOTHYROXINE
     Dosage: 250 MICROGRAM, QD (1 EVERY 24 HOURS)
     Route: 065
  3. FOSINOPRIL [Suspect]
     Active Substance: FOSINOPRIL
     Indication: Product used for unknown indication
     Dosage: 40 MILLIGRAM, BID (2 EVERY 1 DAYS)
     Route: 065
  4. METFORMIN [Suspect]
     Active Substance: METFORMIN HYDROCHLORIDE
     Indication: Product used for unknown indication
     Dosage: 500 MILLIGRAM, BID (2 EVERY 1 DAYS)
     Route: 065
  5. ROSUVASTATIN CALCIUM [Suspect]
     Active Substance: ROSUVASTATIN CALCIUM
     Indication: Product used for unknown indication
     Dosage: 40 MILLIGRAM, QD (1 EVERY 24 HOURS)
     Route: 065
  6. ASPIRIN [Concomitant]
     Active Substance: ASPIRIN
     Indication: Product used for unknown indication
     Dosage: 81 MILLIGRAM, QD (1 EVERY 24 HOURS)
     Route: 065
  7. AMLODIPINE [Concomitant]
     Active Substance: AMLODIPINE BESYLATE
     Indication: Product used for unknown indication
     Dosage: 5 MILLIGRAM, QD (1 EVERY 24 HOURS)
     Route: 065
  8. DOXAZOSIN [Concomitant]
     Active Substance: DOXAZOSIN\DOXAZOSIN MESYLATE
     Indication: Product used for unknown indication
     Dosage: 2 MILLIGRAM, QD (1 EVERY 24 HOURS)
     Route: 065
  9. METOPROLOL [Concomitant]
     Active Substance: METOPROLOL
     Indication: Product used for unknown indication
     Dosage: 25 MILLIGRAM, QD (1 EVERY 24 HOURS)
     Route: 065

REACTIONS (4)
  - Acute kidney injury [Recovering/Resolving]
  - End stage renal disease [Recovering/Resolving]
  - Metabolic acidosis [Recovering/Resolving]
  - Rhabdomyolysis [Recovering/Resolving]
